FAERS Safety Report 4799540-5 (Version None)
Quarter: 2005Q4

REPORT INFORMATION
  Report Type: 
  Country: None (occurrence: None)
  Receive Date: 20051013
  Receipt Date: 20050928
  Transmission Date: 20060501
  Serious: Yes (Hospitalization, Other)
  Sender: FDA-Public Use
  Company Number: DEU-2005-0001710

PATIENT
  Age: 74 Year
  Sex: Male

DRUGS (9)
  1. OXYGESIC 20 MG (OXYCODONE HYDROCHLORIDE) CR TABLET [Suspect]
     Indication: ARTHRALGIA
     Dosage: 20 MG, BID, ORAL
     Route: 048
     Dates: start: 20050704
  2. LACTULOSE [Concomitant]
  3. SIMVASTTIN (SIMVASTATIN) [Concomitant]
  4. ASPIRIN [Concomitant]
  5. TOREM (TORASEMIDE) [Concomitant]
  6. ACERBON^ZENECA^ (LISINOPRIL) [Concomitant]
  7. IBUHEXAL [Concomitant]
  8. NEXIUM [Concomitant]
  9. ISOPTIN [Concomitant]

REACTIONS (7)
  - CONSTIPATION [None]
  - DIVERTICULAR PERFORATION [None]
  - ILEUS PARALYTIC [None]
  - PERITONITIS [None]
  - RESPIRATORY DISTRESS [None]
  - SEPTIC SHOCK [None]
  - URINARY RETENTION [None]
